FAERS Safety Report 9364577 (Version 4)
Quarter: 2013Q3

REPORT INFORMATION
  Report Type: Spontaneous
  Country: US (occurrence: US)
  Receive Date: 20130624
  Receipt Date: 20130813
  Transmission Date: 20140515
  Serious: Yes (Life-Threatening, Other)
  Sender: FDA-Public Use
  Company Number: PHEH2013US013443

PATIENT
  Sex: Female

DRUGS (3)
  1. DIOVAN [Suspect]
     Dosage: 160 MG, QD
  2. DIOVAN [Suspect]
     Dosage: 160 MG, QD
  3. METOPROLOL [Concomitant]
     Dosage: 100 MG

REACTIONS (5)
  - Apparent death [Unknown]
  - Cardiac flutter [Unknown]
  - Malaise [Unknown]
  - Sensitisation [Unknown]
  - Dizziness [Unknown]
